FAERS Safety Report 5532775-2 (Version None)
Quarter: 2007Q4

REPORT INFORMATION
  Report Type: 
  Country: None (occurrence: None)
  Receive Date: 20071130
  Receipt Date: 20071130
  Transmission Date: 20080405
  Serious: Yes (Death)
  Sender: FDA-Public Use
  Company Number: None

PATIENT
  Age: 47 Year
  Sex: Female
  Weight: 55.3388 kg

DRUGS (1)
  1. PHENYTOIN [Suspect]
     Indication: CONVULSION
     Dosage: 750 MG -15MG/KG- ONE DOSE IV
     Route: 042
     Dates: start: 20071023, end: 20071023

REACTIONS (12)
  - BLOOD PRESSURE IMMEASURABLE [None]
  - CARDIAC PERFORATION [None]
  - CONVULSION [None]
  - DEPRESSED LEVEL OF CONSCIOUSNESS [None]
  - HEART RATE DECREASED [None]
  - HEART RATE INCREASED [None]
  - HYPOXIA [None]
  - IATROGENIC INJURY [None]
  - INFUSION RELATED REACTION [None]
  - PERICARDIAL EFFUSION [None]
  - VENTRICLE RUPTURE [None]
  - VENTRICULAR FIBRILLATION [None]
